FAERS Safety Report 8045454-7 (Version None)
Quarter: 2012Q1

REPORT INFORMATION
  Report Type: 
  Country: None (occurrence: None)
  Receive Date: 20120113
  Receipt Date: 20120104
  Transmission Date: 20120608
  Serious: Yes (Hospitalization)
  Sender: FDA-Public Use
  Company Number: US-ACTELION-A-NJ2011-46901

PATIENT

DRUGS (3)
  1. CALCIUM CHANNEL BLOCKERS [Concomitant]
  2. REVATIO [Concomitant]
  3. TRACLEER [Suspect]
     Indication: PULMONARY ARTERIAL HYPERTENSION
     Dosage: UNK
     Route: 048
     Dates: start: 20090306

REACTIONS (8)
  - BLOOD GLUCOSE DECREASED [None]
  - FLUID RETENTION [None]
  - FUNGAL INFECTION [None]
  - BACTERIAL INFECTION [None]
  - CHEST PAIN [None]
  - OEDEMA PERIPHERAL [None]
  - COUGH [None]
  - DYSPNOEA [None]
